FAERS Safety Report 18477228 (Version 2)
Quarter: 2020Q4

REPORT INFORMATION
  Report Type: Report from Study
  Country: CO (occurrence: CO)
  Receive Date: 20201107
  Receipt Date: 20201204
  Transmission Date: 20210114
  Serious: Yes (Other)
  Sender: FDA-Public Use
  Company Number: CO-TAKEDA-CO202004534

PATIENT
  Age: 68 Year
  Sex: Male
  Weight: 65 kg

DRUGS (8)
  1. ICATIBANT [Suspect]
     Active Substance: ICATIBANT ACETATE
     Dosage: 30MG/3ML, AS REQ^D
     Route: 058
     Dates: start: 20200514, end: 20200514
  2. ICATIBANT [Suspect]
     Active Substance: ICATIBANT ACETATE
     Dosage: 30MG/3ML, AS REQ^D (EVERY 6 HOURS , MAXIMUM OF 3 IN 24 HOURS)
     Route: 058
     Dates: start: 20200731, end: 20200731
  3. ICATIBANT [Suspect]
     Active Substance: ICATIBANT ACETATE
     Dosage: 30MG/3ML, AS REQ^D
     Route: 058
     Dates: start: 20200514, end: 20200514
  4. ICATIBANT [Suspect]
     Active Substance: ICATIBANT ACETATE
     Indication: HEREDITARY ANGIOEDEMA
     Dosage: UNK, ADMINISTER 1 PRE-FILLED SYRINGE OF 30 MG/3ML, IN CASE OF ANGIOEDEMA EPISODES, EVERY 6 HOURS
     Route: 058
     Dates: start: 20161101
  5. ICATIBANT [Suspect]
     Active Substance: ICATIBANT ACETATE
     Indication: HEREDITARY ANGIOEDEMA
     Dosage: UNK, ADMINISTER 1 PRE-FILLED SYRINGE OF 30 MG/3ML, IN CASE OF ANGIOEDEMA EPISODES, EVERY 6 HOURS
     Route: 058
     Dates: start: 20161101
  6. ICATIBANT [Suspect]
     Active Substance: ICATIBANT ACETATE
     Dosage: UNK, ADMINISTER 1 PRE-FILLED SYRINGE OF 30 MG/3ML, IN CASE OF ANGIOEDEMA EPISODES, EVERY 6 HOURS
     Route: 058
     Dates: start: 20200131, end: 20200131
  7. ICATIBANT [Suspect]
     Active Substance: ICATIBANT ACETATE
     Dosage: 30MG/3ML, AS REQ^D (EVERY 6 HOURS , MAXIMUM OF 3 IN 24 HOURS)
     Route: 058
     Dates: start: 20200731, end: 20200731
  8. ICATIBANT [Suspect]
     Active Substance: ICATIBANT ACETATE
     Dosage: UNK, ADMINISTER 1 PRE-FILLED SYRINGE OF 30 MG/3ML, IN CASE OF ANGIOEDEMA EPISODES, EVERY 6 HOURS
     Route: 058
     Dates: start: 20200131, end: 20200131

REACTIONS (3)
  - Hereditary angioedema [Recovered/Resolved]
  - Type 2 diabetes mellitus [Unknown]
  - Hypertension [Unknown]

NARRATIVE: CASE EVENT DATE: 20200929
